FAERS Safety Report 5164438-X (Version None)
Quarter: 2006Q4

REPORT INFORMATION
  Report Type: 
  Country: None (occurrence: None)
  Receive Date: 20061205
  Receipt Date: 20061127
  Transmission Date: 20070319
  Serious: Yes (Hospitalization, Other)
  Sender: FDA-Public Use
  Company Number: US-JNJFOC-20061106598

PATIENT
  Sex: Female
  Weight: 77.11 kg

DRUGS (7)
  1. ORTHO EVRA [Suspect]
     Indication: CONTRACEPTION
     Route: 062
     Dates: start: 20060903
  2. RISPERDAL [Concomitant]
     Indication: BIPOLAR DISORDER
     Route: 048
     Dates: start: 20060601
  3. ZOLOFT [Concomitant]
     Indication: BIPOLAR DISORDER
     Route: 048
     Dates: start: 20060601
  4. LAMICTAL [Concomitant]
     Indication: BIPOLAR DISORDER
     Route: 048
     Dates: start: 20060601
  5. ABILIFY [Concomitant]
     Indication: BIPOLAR DISORDER
     Route: 048
     Dates: start: 20060601
  6. ATIVAN [Concomitant]
     Indication: BIPOLAR DISORDER
     Route: 048
     Dates: start: 20060601
  7. RANITIDINE [Concomitant]
     Indication: GASTROINTESTINAL DISORDER
     Route: 048
     Dates: start: 20040101

REACTIONS (4)
  - BIPOLAR DISORDER [None]
  - INAPPROPRIATE SCHEDULE OF DRUG ADMINISTRATION [None]
  - PHARMACEUTICAL PRODUCT COMPLAINT [None]
  - WITHDRAWAL BLEED [None]
